FAERS Safety Report 7033558-7 (Version None)
Quarter: 2010Q4

REPORT INFORMATION
  Report Type: 
  Country: None (occurrence: None)
  Receive Date: 20101007
  Receipt Date: 20100924
  Transmission Date: 20110411
  Serious: Yes (Other)
  Sender: FDA-Public Use
  Company Number: PHHY2010FR65852

PATIENT
  Age: 79 Year
  Sex: Male

DRUGS (5)
  1. PARLODEL [Suspect]
     Indication: PARKINSON'S DISEASE
     Dosage: 10 MG, TID
     Route: 048
     Dates: start: 20030101, end: 20100519
  2. STAGID [Suspect]
     Indication: DIABETES MELLITUS
     Dosage: UNK
     Route: 048
     Dates: start: 20030101
  3. GLIMEPIRIDE [Suspect]
     Indication: DIABETES MELLITUS
     Dosage: UNK
     Route: 048
     Dates: start: 20030101
  4. LAMICTAL [Suspect]
     Indication: EPILEPSY
     Dosage: 100 MG, QD
     Route: 048
     Dates: start: 20060601
  5. MODOPAR [Suspect]
     Indication: EPILEPSY
     Dosage: 250 MG, QID
     Route: 048
     Dates: start: 20030101

REACTIONS (11)
  - BRAIN NATRIURETIC PEPTIDE INCREASED [None]
  - COUGH [None]
  - DYSPNOEA [None]
  - HYPERPLASIA [None]
  - INFLAMMATION [None]
  - PLEURAL CALCIFICATION [None]
  - PLEURAL EFFUSION [None]
  - PLEURAL FIBROSIS [None]
  - PLEURISY [None]
  - PLEURITIC PAIN [None]
  - SWELLING [None]
